FAERS Safety Report 5771532-9 (Version None)
Quarter: 2008Q2

REPORT INFORMATION
  Report Type: 
  Country: None (occurrence: None)
  Receive Date: 20080612
  Receipt Date: 20080612
  Transmission Date: 20081010
  Serious: Yes (Hospitalization, Disabling)
  Sender: FDA-Public Use
  Company Number: None

PATIENT
  Age: 7 Year
  Sex: Female
  Weight: 18 kg

DRUGS (1)
  1. EPIPEN JR. [Suspect]
     Indication: ANAPHYLACTIC REACTION
     Dosage: 0.15 MG 1TIME IM
     Route: 030
     Dates: start: 20080608, end: 20080608

REACTIONS (1)
  - DEVICE SHAPE ALTERATION [None]
